FAERS Safety Report 9205829 (Version 1)
Quarter: 2013Q2

REPORT INFORMATION
  Report Type: Spontaneous
  Country: KR (occurrence: None)
  Receive Date: 20130401
  Receipt Date: 20130401
  Transmission Date: 20140414
  Serious: Yes (Hospitalization)
  Sender: FDA-Public Use
  Company Number: 1645306

PATIENT
  Age: 61 Year
  Sex: Female

DRUGS (4)
  1. CYTARABINE [Suspect]
     Indication: ACUTE LYMPHOCYTIC LEUKAEMIA
     Route: 042
     Dates: start: 20130221, end: 20130221
  2. CHLORPHENIRAMINE/00072501 [Concomitant]
  3. (METHOTREXATE) [Concomitant]
  4. (CYTARABINE) [Concomitant]

REACTIONS (5)
  - Cerebral ataxia [None]
  - Nausea [None]
  - Vomiting [None]
  - Asthenia [None]
  - Nervous system disorder [None]
